FAERS Safety Report 9326334 (Version 2)
Quarter: 2014Q1

REPORT INFORMATION
  Report Type: Spontaneous
  Country: US (occurrence: US)
  Receive Date: 20130604
  Receipt Date: 20140307
  Transmission Date: 20141002
  Serious: Yes (Other)
  Sender: FDA-Public Use
  Company Number: US-BAYER-2013-068306

PATIENT
  Age: 42 Year
  Sex: Male

DRUGS (3)
  1. KOGENATE FS [Suspect]
     Indication: FACTOR VIII DEFICIENCY
     Dosage: 40 IU/KG 1X/8 HOURS
  2. KOGENATE FS [Suspect]
     Indication: FACTOR VIII DEFICIENCY
     Dosage: 200 IU/KG TOTAL
  3. KOGENATE FS [Suspect]
     Indication: FACTOR VIII DEFICIENCY
     Dosage: 20 IU/KG Q1H

REACTIONS (2)
  - Anti factor VIII antibody positive [None]
  - Therapeutic response decreased [None]
